FAERS Safety Report 9915215 (Version 2)
Quarter: 2014Q1

REPORT INFORMATION
  Report Type: Report from Study
  Country: FR (occurrence: FR)
  Receive Date: 20140220
  Receipt Date: 20140220
  Transmission Date: 20141002
  Serious: Yes (Other)
  Sender: FDA-Public Use
  Company Number: FR-US-EMD SERONO, INC.-7219054

PATIENT
  Age: 20 Year
  Sex: Female
  Weight: 50 kg

DRUGS (4)
  1. REBIF [Suspect]
     Indication: RELAPSING-REMITTING MULTIPLE SCLEROSIS
     Route: 058
     Dates: start: 20130601
  2. REBIF [Suspect]
     Dates: end: 20130618
  3. PARACETAMOL [Concomitant]
     Indication: PAIN
     Route: 048
  4. DESOGESTREL W/ETHINYLESTRADIOL [Concomitant]
     Indication: CONTRACEPTION
     Route: 048
     Dates: start: 2009, end: 201312

REACTIONS (5)
  - Aphthous stomatitis [Recovered/Resolved]
  - Rash [Recovered/Resolved]
  - Injection site erythema [Recovered/Resolved]
  - Injection site pruritus [Recovered/Resolved]
  - Urinary tract infection [Recovered/Resolved]
